FAERS Safety Report 7474441-2 (Version None)
Quarter: 2011Q2

REPORT INFORMATION
  Report Type: 
  Country: None (occurrence: None)
  Receive Date: 20110512
  Receipt Date: 20110210
  Transmission Date: 20111010
  Serious: No
  Sender: FDA-Public Use
  Company Number: US-BAYER-2011-013736

PATIENT
  Age: 38 Year
  Sex: Female

DRUGS (3)
  1. AVELOX [Suspect]
     Indication: SINUSITIS
     Dosage: UNK
  2. NASONEX [Suspect]
     Indication: SINUSITIS
     Dosage: UNK
  3. MUCINEX [Suspect]
     Indication: SINUSITIS
     Dosage: UNK

REACTIONS (1)
  - SINUSITIS [None]
